FAERS Safety Report 13182306 (Version 3)
Quarter: 2017Q1

REPORT INFORMATION
  Report Type: Spontaneous
  Country: KZ (occurrence: KZ)
  Receive Date: 20170202
  Receipt Date: 20170330
  Transmission Date: 20170428
  Serious: Yes (Other)
  Sender: FDA-Public Use
  Company Number: KZ-BIOMARINAP-KZ-2017-112640

PATIENT
  Age: 5 Year
  Sex: Male
  Weight: 15 kg

DRUGS (1)
  1. ALDURAZYME [Suspect]
     Active Substance: LARONIDASE
     Indication: MUCOPOLYSACCHARIDOSIS I
     Route: 041

REACTIONS (8)
  - Retinal vascular disorder [Unknown]
  - Condition aggravated [Unknown]
  - Tunnel vision [Unknown]
  - Drug ineffective [Unknown]
  - Muscle contracture [Unknown]
  - Developmental delay [Unknown]
  - Inguinal hernia [Unknown]
  - Product use issue [Unknown]
